FAERS Safety Report 6417803-4 (Version None)
Quarter: 2009Q4

REPORT INFORMATION
  Report Type: 
  Country: None (occurrence: None)
  Receive Date: 20091027
  Receipt Date: 20091027
  Transmission Date: 20100525
  Serious: Yes (Life-Threatening)
  Sender: FDA-Public Use
  Company Number: None

PATIENT
  Age: 66 Year
  Sex: Female
  Weight: 63 kg

DRUGS (6)
  1. PHENYTOIN [Suspect]
     Indication: STATUS EPILEPTICUS
     Dosage: 1 G IV LD
     Route: 042
     Dates: start: 20090913
  2. PHENYTOIN [Suspect]
     Indication: STATUS EPILEPTICUS
     Dosage: 700 MG IV LD
     Route: 042
     Dates: start: 20090913
  3. LORAZEPAM [Concomitant]
  4. HEPARIN [Concomitant]
  5. FENTANYL-100 [Concomitant]
  6. RANITIDINE [Concomitant]

REACTIONS (1)
  - ANTICONVULSANT DRUG LEVEL ABOVE THERAPEUTIC [None]
